FAERS Safety Report 8425629-5 (Version None)
Quarter: 2012Q2

REPORT INFORMATION
  Report Type: 
  Country: None (occurrence: None)
  Receive Date: 20120611
  Receipt Date: 20120604
  Transmission Date: 20120825
  Serious: Yes (Other)
  Sender: FDA-Public Use
  Company Number: PHHY2012JP045600

PATIENT
  Age: 62 Year
  Sex: Male

DRUGS (3)
  1. NEORAL [Suspect]
     Indication: CROHN'S DISEASE
     Dosage: 400 MG, UNK
     Route: 048
     Dates: start: 20120511
  2. PROPOLIS [Interacting]
     Dosage: UNK UKN, UNK
  3. TAHEEBO [Interacting]
     Dosage: UNK UKN, UNK

REACTIONS (2)
  - DRUG INTERACTION [None]
  - THERAPEUTIC RESPONSE DECREASED [None]
